FAERS Safety Report 16349113 (Version 1)
Quarter: 2019Q2

REPORT INFORMATION
  Report Type: Spontaneous
  Country: HR (occurrence: HR)
  Receive Date: 20190523
  Receipt Date: 20190523
  Transmission Date: 20190711
  Serious: Yes (Other)
  Sender: FDA-Public Use
  Company Number: HR-TEVA-2019-HR-1053404

PATIENT
  Age: 30 Year
  Sex: Male

DRUGS (4)
  1. TRAMADOL. [Suspect]
     Active Substance: TRAMADOL
     Route: 048
     Dates: start: 20181219, end: 20181219
  2. DEPAKINE CHRONO [Suspect]
     Active Substance: VALPROATE SODIUM
     Route: 048
     Dates: start: 20181219, end: 20181219
  3. RIVOTRIL [Suspect]
     Active Substance: CLONAZEPAM
     Route: 048
     Dates: start: 20181219, end: 20181219
  4. ZOLPIDEM [Suspect]
     Active Substance: ZOLPIDEM\ZOLPIDEM TARTRATE
     Route: 048
     Dates: start: 20181219, end: 20181219

REACTIONS (3)
  - Sopor [Unknown]
  - Somnolence [Unknown]
  - Overdose [Unknown]

NARRATIVE: CASE EVENT DATE: 20181219
